FAERS Safety Report 8435109-9 (Version None)
Quarter: 2012Q2

REPORT INFORMATION
  Report Type: 
  Country: None (occurrence: None)
  Receive Date: 20120608
  Receipt Date: 20120608
  Transmission Date: 20120825
  Serious: Yes (Life-Threatening, Disabling)
  Sender: FDA-Public Use
  Company Number: None

PATIENT
  Age: 55 Year
  Sex: Female
  Weight: 66.2252 kg

DRUGS (2)
  1. ESKALITH [Suspect]
     Indication: BIPOLAR DISORDER
     Dosage: 1 300MG IN AM AND 2 300MG @PM
     Dates: start: 19870101, end: 20080901
  2. LITHIUM CARBONATE [Suspect]
     Indication: BIPOLAR DISORDER
     Dosage: 1 300MG IN AM AND 2 300MG @ PM
     Dates: start: 19870116, end: 20080901

REACTIONS (1)
  - RENAL FAILURE CHRONIC [None]
